FAERS Safety Report 5248630-1 (Version None)
Quarter: 2007Q1

REPORT INFORMATION
  Report Type: 
  Country: None (occurrence: None)
  Receive Date: 20070222
  Receipt Date: 20070209
  Transmission Date: 20070707
  Serious: Yes (Death, Hospitalization)
  Sender: FDA-Public Use
  Company Number: A-US2007-14252

PATIENT
  Age: 70 Year
  Sex: Female
  Weight: 68 kg

DRUGS (10)
  1. VENTAVIS [Suspect]
     Indication: PULMONARY HYPERTENSION
     Dosage: 5 UG, 4-5 X Q D, RESPIRATORY
     Route: 055
     Dates: start: 20061215, end: 20061226
  2. BUMETANIDE [Concomitant]
  3. METOPROLOL TARTRATE [Concomitant]
  4. SILDENAFIL CITRATE [Concomitant]
  5. VICODIN [Concomitant]
  6. PRIMIDONE [Concomitant]
  7. OMEPRAZOLE [Concomitant]
  8. IPRATROPIUM BROMIDE [Concomitant]
  9. FERROUS SULFATE TAB [Concomitant]
  10. RIFAXIMIN (RIFAXIMIN) [Concomitant]

REACTIONS (7)
  - CONDITION AGGRAVATED [None]
  - DISEASE PROGRESSION [None]
  - HEPATIC ENCEPHALOPATHY [None]
  - OEDEMA PERIPHERAL [None]
  - PULMONARY HYPERTENSION [None]
  - RENAL FAILURE [None]
  - WEIGHT INCREASED [None]
